FAERS Safety Report 11294161 (Version 1)
Quarter: 2015Q3

REPORT INFORMATION
  Report Type: Spontaneous
  Country: US (occurrence: US)
  Receive Date: 20150722
  Receipt Date: 20150722
  Transmission Date: 20151125
  Serious: No
  Sender: FDA-Public Use
  Company Number: US-ELI_LILLY_AND_COMPANY-US200711004325

PATIENT
  Sex: Female
  Weight: 69.84 kg

DRUGS (1)
  1. EVISTA [Suspect]
     Active Substance: RALOXIFENE HYDROCHLORIDE
     Indication: BONE DENSITY DECREASED
     Dosage: 60 MG, UNK
     Route: 048
     Dates: start: 200609, end: 20071116

REACTIONS (5)
  - Abdominal discomfort [Not Recovered/Not Resolved]
  - Dyspepsia [Not Recovered/Not Resolved]
  - Gastrooesophageal reflux disease [Not Recovered/Not Resolved]
  - Tooth discolouration [Unknown]
  - Sensitivity of teeth [Not Recovered/Not Resolved]

NARRATIVE: CASE EVENT DATE: 2006
